FAERS Safety Report 22317439 (Version 3)
Quarter: 2023Q2

REPORT INFORMATION
  Report Type: Report from Study
  Country: US (occurrence: US)
  Receive Date: 20230515
  Receipt Date: 20230522
  Transmission Date: 20230722
  Serious: Yes (Other)
  Sender: FDA-Public Use
  Company Number: US-ABBVIE-4702332

PATIENT
  Age: 65 Year
  Sex: Female
  Weight: 58 kg

DRUGS (10)
  1. RINVOQ [Suspect]
     Active Substance: UPADACITINIB
     Indication: Rheumatoid arthritis
     Dosage: FORM STRENGTH 15 MG
     Route: 048
     Dates: start: 2020
  2. PROPRANOLOL [Concomitant]
     Active Substance: PROPRANOLOL HYDROCHLORIDE
     Indication: Product used for unknown indication
     Route: 048
  3. ESCITALOPRAM [Concomitant]
     Active Substance: ESCITALOPRAM OXALATE
     Indication: Product used for unknown indication
     Route: 048
  4. DICLOFENAC SODIUM [Concomitant]
     Active Substance: DICLOFENAC SODIUM
     Indication: Product used for unknown indication
     Route: 048
  5. PREDNISONE [Concomitant]
     Active Substance: PREDNISONE
     Indication: Product used for unknown indication
     Route: 048
  6. CALCIUM ACETATE [Concomitant]
     Active Substance: CALCIUM ACETATE
     Indication: Product used for unknown indication
     Route: 048
  7. CALCIUM ACETATE [Concomitant]
     Active Substance: CALCIUM ACETATE
     Indication: Product used for unknown indication
     Dosage: 500 PLUS 0 500 MG-10 MCG
  8. ALENDRONATE [Concomitant]
     Active Substance: ALENDRONATE SODIUM
     Indication: Product used for unknown indication
  9. SYNTHROID [Suspect]
     Active Substance: LEVOTHYROXINE SODIUM
     Indication: Thyroid cancer
     Route: 048
     Dates: start: 2005
  10. CALCIUM [Concomitant]
     Active Substance: CALCIUM
     Indication: Product used for unknown indication

REACTIONS (23)
  - Hip fracture [Recovering/Resolving]
  - Pelvic fracture [Unknown]
  - Gastrooesophageal reflux disease [Unknown]
  - Neck pain [Unknown]
  - Upper limb fracture [Unknown]
  - Multiple fractures [Unknown]
  - Ulna fracture [Unknown]
  - Essential tremor [Unknown]
  - Hypothyroidism [Unknown]
  - Anxiety [Unknown]
  - Insomnia [Unknown]
  - Rhinitis allergic [Unknown]
  - Spinal fusion surgery [Unknown]
  - Depression [Unknown]
  - Femoral neck fracture [Unknown]
  - Spinal osteoarthritis [Unknown]
  - Pelvic haemorrhage [Unknown]
  - Oesophagitis [Unknown]
  - Influenza A virus test positive [Unknown]
  - COVID-19 [Unknown]
  - Gastric cyst [Unknown]
  - Spinal fracture [Recovering/Resolving]
  - Pelvic fracture [Recovering/Resolving]

NARRATIVE: CASE EVENT DATE: 20170801
